FAERS Safety Report 6097028-5 (Version None)
Quarter: 2009Q1

REPORT INFORMATION
  Report Type: 
  Country: None (occurrence: None)
  Receive Date: 20090225
  Receipt Date: 20090210
  Transmission Date: 20090719
  Serious: Yes (Hospitalization, Disabling)
  Sender: FDA-Public Use
  Company Number: 2009AL000796

PATIENT
  Age: 50 Year
  Sex: Male

DRUGS (2)
  1. SULFATRIM PEDIATRIC [Suspect]
     Indication: ARTHROPOD BITE
     Dates: start: 20070501
  2. CYCLOSPORINE [Concomitant]

REACTIONS (8)
  - BILIRUBIN CONJUGATED INCREASED [None]
  - BLOOD URIC ACID INCREASED [None]
  - ERYTHRODERMIC PSORIASIS [None]
  - HEPATITIS C POSITIVE [None]
  - MALAISE [None]
  - OEDEMA PERIPHERAL [None]
  - PLATELET COUNT DECREASED [None]
  - PYREXIA [None]
